FAERS Safety Report 10164337 (Version 2)
Quarter: 2014Q2

REPORT INFORMATION
  Report Type: Spontaneous
  Country: US (occurrence: US)
  Receive Date: 20140510
  Receipt Date: 20140510
  Transmission Date: 20141212
  Serious: No
  Sender: FDA-Public Use
  Company Number: US-BRISTOL-MYERS SQUIBB COMPANY-20058004

PATIENT
  Age: 65 Year
  Sex: Female
  Weight: 79.36 kg

DRUGS (4)
  1. BYDUREON [Suspect]
     Indication: TYPE 2 DIABETES MELLITUS
     Dosage: RECENT DOSE: 24JAN14
     Route: 058
     Dates: start: 20131220, end: 20140124
  2. METFORMIN [Concomitant]
  3. AMLODIPINE [Concomitant]
  4. GLIMEPIRIDE [Concomitant]

REACTIONS (6)
  - Injection site haemorrhage [Unknown]
  - Injection site extravasation [Unknown]
  - Injection site pain [Unknown]
  - Paraesthesia [Recovered/Resolved]
  - Urticaria [Recovered/Resolved]
  - Product quality issue [Unknown]
